FAERS Safety Report 8827868 (Version 2)
Quarter: 2012Q4

REPORT INFORMATION
  Report Type: 
  Country: US (occurrence: US)
  Receive Date: 20121008
  Receipt Date: 20121017
  Transmission Date: 20130627
  Serious: No
  Sender: FDA-Public Use
  Company Number: US-PFIZER INC-2012246042

PATIENT
  Age: 44 Year
  Sex: Female
  Weight: 130 kg

DRUGS (3)
  1. CHANTIX [Suspect]
     Indication: SMOKING CESSATION THERAPY
     Dosage: 0.5 mg, daily
     Dates: start: 20121001
  2. LEVOXYL [Concomitant]
     Indication: THYROID DISORDER
     Dosage: 0.175 mg, daily
  3. LEXAPRO [Concomitant]
     Indication: DEPRESSION
     Dosage: 10 mg, daily

REACTIONS (1)
  - Headache [Not Recovered/Not Resolved]
